FAERS Safety Report 14595294 (Version 1)
Quarter: 2018Q1

REPORT INFORMATION
  Report Type: Spontaneous
  Country: US (occurrence: US)
  Receive Date: 20180302
  Receipt Date: 20180302
  Transmission Date: 20180509
  Serious: No
  Sender: FDA-Public Use
  Company Number: US-AKORN PHARMACEUTICALS-2017AKN01461

PATIENT
  Age: 11 Year
  Sex: Female
  Weight: 60.77 kg

DRUGS (2)
  1. MULTIVITAMIN [Concomitant]
     Active Substance: VITAMINS
  2. MYORISAN [Suspect]
     Active Substance: ISOTRETINOIN
     Indication: ACNE CYSTIC
     Dosage: 40 MG, 1X/DAY
     Dates: start: 20170801, end: 20171116

REACTIONS (6)
  - Pyrexia [Recovering/Resolving]
  - Anaemia [Recovering/Resolving]
  - Myalgia [Recovering/Resolving]
  - Upper respiratory tract infection [Recovering/Resolving]
  - Weight decreased [Recovering/Resolving]
  - Off label use [Recovered/Resolved]

NARRATIVE: CASE EVENT DATE: 2017
